FAERS Safety Report 15189780 (Version 1)
Quarter: 2018Q3

REPORT INFORMATION
  Report Type: Spontaneous
  Country: US (occurrence: US)
  Receive Date: 20180625
  Receipt Date: 20180625
  Transmission Date: 20181010
  Serious: Yes (Other)
  Sender: FDA-Public Use
  Company Number: None

PATIENT
  Age: 13 Year
  Sex: Male
  Weight: 46.5 kg

DRUGS (3)
  1. CYCLOPHOSPHAMIDE. [Concomitant]
     Active Substance: CYCLOPHOSPHAMIDE
     Dates: start: 20180601, end: 20180602
  2. TISAGENLECLEUCEL. [Suspect]
     Active Substance: TISAGENLECLEUCEL
     Indication: LEUKAEMIA RECURRENT
     Route: 042
     Dates: start: 20180607, end: 20180607
  3. FLUDARABINE [Concomitant]
     Active Substance: FLUDARABINE PHOSPHATE
     Dates: start: 20180601, end: 20180604

REACTIONS (5)
  - Hypoxia [None]
  - Cardiorenal syndrome [None]
  - Hypotension [None]
  - Pyrexia [None]
  - Facial paralysis [None]

NARRATIVE: CASE EVENT DATE: 20180611
